FAERS Safety Report 9764525 (Version 1)
Quarter: 2013Q4

REPORT INFORMATION
  Report Type: Spontaneous
  Country: US (occurrence: US)
  Receive Date: 20131217
  Receipt Date: 20131217
  Transmission Date: 20140711
  Serious: No
  Sender: FDA-Public Use
  Company Number: US-B.I. PHARMACEUTICALS,INC./RIDGEFIELD-2013-BI-38692BP

PATIENT
  Age: 48 Year
  Sex: Female
  Weight: 117 kg

DRUGS (4)
  1. COMBIVENT [Suspect]
     Indication: ASTHMA
     Dosage: DOSE: 4X 2.5MG - 0.5MG/3ML DAILY
     Route: 055
     Dates: start: 20050701, end: 20131114
  2. COMBIVENT [Suspect]
     Indication: CHRONIC OBSTRUCTIVE PULMONARY DISEASE
  3. COMBIVENT [Suspect]
     Indication: IDIOPATHIC PULMONARY FIBROSIS
  4. ALBUTEROL INHALER [Concomitant]
     Indication: ASTHMA
     Dosage: DOSE: 290MCG AS NEEDED
     Route: 055
     Dates: start: 19710701, end: 20060701

REACTIONS (2)
  - Panic disorder [Unknown]
  - Tremor [Unknown]
